FAERS Safety Report 18618514 (Version 1)
Quarter: 2020Q4

REPORT INFORMATION
  Report Type: Spontaneous
  Country: ES (occurrence: ES)
  Receive Date: 20201215
  Receipt Date: 20201215
  Transmission Date: 20210114
  Serious: Yes (Other)
  Sender: FDA-Public Use
  Company Number: ES-TEVA-2020-ES-1857346

PATIENT
  Age: 51 Year
  Sex: Male

DRUGS (3)
  1. AZITROMICINA (7019A) [Suspect]
     Active Substance: AZITHROMYCIN
     Indication: COVID-19 PNEUMONIA
     Dosage: UNIT DOSE : 250 MG
     Route: 048
     Dates: start: 20200327, end: 20200402
  2. LOPINAVIR/RITONAVIR ACCORD 200 MG/ 50 MG COMPRIMIDOS RECUBIERTOS CON P [Interacting]
     Active Substance: LOPINAVIR\RITONAVIR
     Indication: COVID-19 PNEUMONIA
     Dosage: UNIT DOSE : 1 DOSAGE FORMS
     Route: 042
     Dates: start: 20200327, end: 20200331
  3. DOLQUINE 200 MG COMPRIMIDOS RECUBIERTOS, 30 COMPRIMIDOS [Interacting]
     Active Substance: HYDROXYCHLOROQUINE SULFATE
     Indication: COVID-19 PNEUMONIA
     Dosage: UNIT DOSE : 400 MG
     Route: 048
     Dates: start: 20200328, end: 20200330

REACTIONS (2)
  - Drug interaction [Unknown]
  - Long QT syndrome [Recovered/Resolved]

NARRATIVE: CASE EVENT DATE: 20200330
